FAERS Safety Report 17371788 (Version 1)
Quarter: 2020Q1

REPORT INFORMATION
  Report Type: Spontaneous
  Country: US (occurrence: US)
  Receive Date: 20200205
  Receipt Date: 20200205
  Transmission Date: 20200409
  Serious: Yes (Death)
  Sender: FDA-Public Use
  Company Number: US-ALVOGEN-2020-ALVOGEN-107525

PATIENT
  Age: 37 Year
  Sex: Male

DRUGS (6)
  1. COCAINE [Suspect]
     Active Substance: COCAINE
     Indication: SUICIDE ATTEMPT
     Dosage: ROUTE: INGST, INHAL, UNK
  2. ARIPIPRAZOLE. [Suspect]
     Active Substance: ARIPIPRAZOLE
     Indication: SUICIDE ATTEMPT
     Dosage: ROUTE: INGST+INHAL+UNK
  3. TRAZODONE [Suspect]
     Active Substance: TRAZODONE HYDROCHLORIDE
     Indication: SUICIDE ATTEMPT
     Dosage: ROUTE: INGST, INHAL, UNK
  4. HYDRALAZINE [Suspect]
     Active Substance: HYDRALAZINE HYDROCHLORIDE
     Indication: SUICIDE ATTEMPT
     Dosage: ROUTE: INGST, INHAL, UNK
  5. PHENYTOIN. [Suspect]
     Active Substance: PHENYTOIN
     Indication: SUICIDE ATTEMPT
     Dosage: ROUTE: INGST, INHAL, UNK
  6. BENZATROPINE MESILATE [Suspect]
     Active Substance: BENZTROPINE
     Indication: SUICIDE ATTEMPT
     Dosage: ROUTE: INGST, INHAL, UNK

REACTIONS (1)
  - Completed suicide [Fatal]
